FAERS Safety Report 6048312-2 (Version None)
Quarter: 2009Q1

REPORT INFORMATION
  Report Type: 
  Country: None (occurrence: None)
  Receive Date: 20090121
  Receipt Date: 20090121
  Transmission Date: 20090719
  Serious: Yes (Death)
  Sender: FDA-Public Use
  Company Number: None

PATIENT
  Weight: 70.3075 kg

DRUGS (1)
  1. DIGITEK AMID PHARM./BERTECK PHARMACEUTICAL [Suspect]
     Indication: CARDIAC FAILURE CONGESTIVE
     Dosage: 125 MCG DAILY PO
     Route: 048

REACTIONS (4)
  - CARDIAC ARREST [None]
  - IMPLANTABLE DEFIBRILLATOR MALFUNCTION [None]
  - NO THERAPEUTIC RESPONSE [None]
  - PRODUCT QUALITY ISSUE [None]
